FAERS Safety Report 11134269 (Version 3)
Quarter: 2020Q3

REPORT INFORMATION
  Report Type: Report from Study
  Country: DE (occurrence: DE)
  Receive Date: 20150524
  Receipt Date: 20200817
  Transmission Date: 20201102
  Serious: Yes (Death, Hospitalization)
  Sender: FDA-Public Use
  Company Number: DE-BRISTOL-MYERS SQUIBB COMPANY-BMS-2015-032825

PATIENT
  Age: 77 Year
  Sex: Male
  Weight: 85 kg

DRUGS (22)
  1. GRANISETRON [Concomitant]
     Active Substance: GRANISETRON
     Dosage: UNK, UNKNOWN
     Dates: start: 20150312, end: 20150312
  2. CETUXIMAB. [Suspect]
     Active Substance: CETUXIMAB
     Dosage: 400 MG/M2, UNKNOWN
     Route: 042
     Dates: start: 20150226, end: 20150226
  3. MAGNESIUM [Concomitant]
     Active Substance: MAGNESIUM
     Indication: PREMEDICATION
     Dosage: UNK, QWK
     Route: 065
     Dates: start: 20150226, end: 20150226
  4. 5?FLUOROURACIL [FLUOROURACIL] [Concomitant]
     Active Substance: FLUOROURACIL
     Indication: COLORECTAL CANCER METASTATIC
     Dosage: 2800 MG/M2, Q2WK
     Route: 042
     Dates: start: 20150225
  5. CLEMASTIN [Concomitant]
     Active Substance: CLEMASTINE
     Indication: PREMEDICATION
     Dosage: UNK, UNKNOWN
     Route: 065
     Dates: start: 20150226, end: 20150226
  6. POTASSIUM CHLORIDE. [Concomitant]
     Active Substance: POTASSIUM CHLORIDE
     Indication: PREMEDICATION
     Dosage: 60 MMOL, UNKNOWN
     Route: 065
     Dates: start: 20150409, end: 20150409
  7. CETUXIMAB. [Suspect]
     Active Substance: CETUXIMAB
     Indication: COLORECTAL CANCER METASTATIC
     Dosage: 400 MG/M2, UNK
     Route: 042
     Dates: start: 20150226, end: 20150226
  8. CETUXIMAB. [Suspect]
     Active Substance: CETUXIMAB
     Dosage: 250 UNK, UNKNOWN
     Route: 042
     Dates: start: 20150430, end: 20150430
  9. CALCIUM [Concomitant]
     Active Substance: CALCIUM
     Indication: PREMEDICATION
     Dosage: UNK, QWK
     Route: 065
     Dates: start: 20150226, end: 20150226
  10. OXALIPLATIN. [Concomitant]
     Active Substance: OXALIPLATIN
     Indication: COLORECTAL CANCER METASTATIC
     Dosage: 100 MG/M2, Q2WK
     Route: 042
     Dates: start: 20150225
  11. FOLINIC ACID [Concomitant]
     Active Substance: LEUCOVORIN
     Indication: COLORECTAL CANCER METASTATIC
     Dosage: 400 MG/M2, Q2WK
     Route: 042
     Dates: start: 20150225
  12. ARANESP [Concomitant]
     Active Substance: DARBEPOETIN ALFA
     Indication: PREMEDICATION
     Dosage: UNK, UNKNOWN
     Dates: start: 20150416, end: 20150416
  13. CALCIUM [Concomitant]
     Active Substance: CALCIUM
     Dosage: UNK, QWK
     Route: 065
     Dates: start: 20150409, end: 20150416
  14. CALCIUM [Concomitant]
     Active Substance: CALCIUM
     Dosage: UNK, QWK
     Route: 065
     Dates: start: 20150423, end: 20150430
  15. POTASSIUM CHLORIDE. [Concomitant]
     Active Substance: POTASSIUM CHLORIDE
     Dosage: 40 UNK
     Dates: start: 20150423, end: 20150430
  16. RANITIDINE. [Concomitant]
     Active Substance: RANITIDINE
     Indication: PREMEDICATION
     Dosage: UNK, UNKNOWN
     Route: 065
     Dates: start: 20150226, end: 20150226
  17. MAGNESIUM [Concomitant]
     Active Substance: MAGNESIUM
     Dosage: UNK, QWK
     Route: 065
     Dates: start: 20150409, end: 20150416
  18. CETUXIMAB. [Suspect]
     Active Substance: CETUXIMAB
     Dosage: 400 UNK
     Route: 042
     Dates: start: 20150226, end: 20150226
  19. MAGNESIUM [Concomitant]
     Active Substance: MAGNESIUM
     Dosage: UNK, ONE TIME DOSE
     Route: 065
     Dates: start: 20150423, end: 20150430
  20. VITAMIN B6 [Concomitant]
     Active Substance: PYRIDOXINE HYDROCHLORIDE
     Indication: PREMEDICATION
     Dosage: 100 MG, ONE TIME DOSE
     Route: 065
     Dates: start: 20150430, end: 20150430
  21. GRANISETRON [Concomitant]
     Active Substance: GRANISETRON
     Indication: PREMEDICATION
     Dosage: UNK, UNKNOWN
     Route: 065
     Dates: start: 20150226, end: 20150226
  22. RANITIDINE. [Concomitant]
     Active Substance: RANITIDINE
     Dosage: UNK, UNKNOWN
     Route: 065
     Dates: start: 20150312, end: 20150312

REACTIONS (2)
  - Sepsis [Fatal]
  - Diarrhoea [Unknown]

NARRATIVE: CASE EVENT DATE: 20150506
